FAERS Safety Report 21456981 (Version 1)
Quarter: 2022Q4

REPORT INFORMATION
  Report Type: Spontaneous
  Country: US (occurrence: US)
  Receive Date: 20221014
  Receipt Date: 20221014
  Transmission Date: 20230113
  Serious: Yes (Other)
  Sender: FDA-Public Use
  Company Number: US-BRISTOL-MYERS SQUIBB COMPANY-2022-120706

PATIENT
  Age: 27 Year
  Sex: Male
  Weight: 127 kg

DRUGS (4)
  1. ELIQUIS [Interacting]
     Active Substance: APIXABAN
     Indication: Deep vein thrombosis
     Route: 048
     Dates: start: 202201, end: 2022
  2. ELIQUIS [Interacting]
     Active Substance: APIXABAN
     Route: 048
     Dates: start: 2022, end: 202207
  3. ADEMETIONINE [Interacting]
     Active Substance: ADEMETIONINE
     Indication: Product used for unknown indication
     Route: 065
  4. HERBALS [Interacting]
     Active Substance: HERBALS
     Indication: Product used for unknown indication
     Route: 065

REACTIONS (2)
  - Treatment failure [Unknown]
  - Drug interaction [Unknown]

NARRATIVE: CASE EVENT DATE: 20220101
